FAERS Safety Report 14619905 (Version 9)
Quarter: 2018Q4

REPORT INFORMATION
  Report Type: Spontaneous
  Country: PL (occurrence: PL)
  Receive Date: 20180309
  Receipt Date: 20181005
  Transmission Date: 20190204
  Serious: Yes (Other)
  Sender: FDA-Public Use
  Company Number: PL-PFIZER INC-2018094079

PATIENT
  Age: 73 Year
  Sex: Female

DRUGS (9)
  1. RUXOLITINIB [Concomitant]
     Active Substance: RUXOLITINIB
     Dosage: 10 MG, EVERY DAY
     Route: 048
     Dates: start: 201705
  2. RUXOLITINIB [Concomitant]
     Active Substance: RUXOLITINIB
     Dosage: 10 MG, EVERY DAY
     Route: 048
     Dates: start: 201709
  3. SULFAMETHOXAZOLE AND TRIMETHOPRIM [Suspect]
     Active Substance: SULFAMETHOXAZOLE\TRIMETHOPRIM
     Dosage: UNK
     Route: 065
     Dates: start: 201702
  4. RUXOLITINIB [Concomitant]
     Active Substance: RUXOLITINIB
     Dosage: ACCORDING TO CINC 424A2401
     Dates: start: 20130625, end: 20170105
  5. ANIDULAFUNGIN [Suspect]
     Active Substance: ANIDULAFUNGIN
     Dosage: UNK
     Route: 065
     Dates: start: 201601
  6. RUXOLITINIB [Concomitant]
     Active Substance: RUXOLITINIB
     Dosage: 30 MG, EVERY DAY
     Route: 048
     Dates: start: 201710, end: 201712
  7. ACYCLOVIR /00587301/ [Concomitant]
     Active Substance: ACYCLOVIR
     Dosage: UNK
     Route: 065
     Dates: start: 201709
  8. VORICONAZOLE. [Suspect]
     Active Substance: VORICONAZOLE
     Dosage: UNK
     Route: 065
     Dates: start: 201601
  9. OSELTAMIVIR [Suspect]
     Active Substance: OSELTAMIVIR
     Dosage: UNK
     Route: 065
     Dates: start: 201601

REACTIONS (12)
  - Pyrexia [Unknown]
  - Hypogammaglobulinaemia [Unknown]
  - Febrile neutropenia [Unknown]
  - Laboratory test abnormal [Unknown]
  - Cachexia [Unknown]
  - Oral herpes [Unknown]
  - General physical health deterioration [Unknown]
  - Pancytopenia [Unknown]
  - Splenomegaly [Unknown]
  - Primary myelofibrosis [Unknown]
  - Pneumonia [Unknown]
  - Concomitant disease progression [Unknown]

NARRATIVE: CASE EVENT DATE: 201702
